FAERS Safety Report 6523706-7 (Version None)
Quarter: 2009Q4

REPORT INFORMATION
  Report Type: 
  Country: None (occurrence: None)
  Receive Date: 20091222
  Receipt Date: 20091208
  Transmission Date: 20100525
  Serious: Yes (Other)
  Sender: FDA-Public Use
  Company Number: 8050284

PATIENT
  Age: 79 Year
  Sex: Male

DRUGS (4)
  1. PREDNISOLONE [Suspect]
     Indication: IMMUNOGLOBULIN THERAPY
  2. PREDNISOLONE [Suspect]
     Indication: STEROID THERAPY
  3. IMMUNE GLOBULIN INTRAVENOUS (HUMAN) [Concomitant]
  4. STEROID ANTIBACTERIALS [Concomitant]

REACTIONS (4)
  - DRUG INEFFECTIVE [None]
  - HELICOBACTER INFECTION [None]
  - IDIOPATHIC THROMBOCYTOPENIC PURPURA [None]
  - MALAISE [None]
